FAERS Safety Report 23979404 (Version 2)
Quarter: 2024Q2

REPORT INFORMATION
  Report Type: Report from Study
  Country: BR (occurrence: BR)
  Receive Date: 20240615
  Receipt Date: 20240620
  Transmission Date: 20240716
  Serious: Yes (Other)
  Sender: FDA-Public Use
  Company Number: BR-AMGEN-BRASL2024085028

PATIENT
  Age: 47 Year
  Sex: Female

DRUGS (24)
  1. VECTIBIX [Suspect]
     Active Substance: PANITUMUMAB
     Indication: Gastrointestinal cancer metastatic
     Dosage: UNK, Q2WK (14 DAYS)
     Route: 042
     Dates: start: 20240422
  2. VECTIBIX [Suspect]
     Active Substance: PANITUMUMAB
     Dosage: UNK, EVERY 15 DAYS, PORT-A-CATH
     Route: 042
     Dates: start: 20240513
  3. MAGNESIUM GLYCINATE [Concomitant]
     Active Substance: MAGNESIUM GLYCINATE
     Dosage: 100 MILLIGRAM, 1 TABLET ON AN EMPTY STOMACH AND 1 TABLET AT 5:00 PM FOR 90
     Route: 065
  4. MAGNESIUM ASPARTATE [Concomitant]
     Active Substance: MAGNESIUM ASPARTATE
     Dosage: 100 MILLIGRAM, 1 TABLET ON AN EMPTY STOMACH AND 1 TABLET AT 5:00 PM FOR 90
  5. MAGNESIUM TAURATE [Concomitant]
     Dosage: 125 MILLIGRAM, 1 TABLET ON AN EMPTY STOMACH AND 1 TABLET AT 5:00 PM FOR 90
     Route: 065
  6. MAGNESIUM MALATE [Concomitant]
     Active Substance: MAGNESIUM MALATE
     Dosage: 150 MILLIGRAM, 1 TABLET ON AN EMPTY STOMACH AND 1 TABLET AT 5:00 PM FOR 90
     Route: 065
  7. MELATONIN [Concomitant]
     Active Substance: MELATONIN
     Dosage: 3 MILLIGRAM, QD (1 TABLET 30 MINUTES BEFORE BED FOR 90 DAY)
     Route: 065
  8. SELENIUM [Concomitant]
     Active Substance: SELENIUM
     Dosage: 50 MICROGRAM, QD (1 TABLET 30 MINUTES BEFORE BED FOR 90)
  9. ZINC [Concomitant]
     Active Substance: PYRITHIONE ZINC\ZINC\ZINC CHLORIDE
     Dosage: 20 MILLIGRAM, QD (1 TABLET 30 MINUTES BEFORE BED FOR 90)
  10. Melissa [Concomitant]
     Dosage: UNK, 1 TABLET BEFORE SLEEP FOR 90 DAYS
  11. P-COUMARIC ACID [Concomitant]
     Dosage: 200 MILLIGRAM, 1 TABLET BEFORE SLEEP FOR 90 DAYS
  12. VITEXIN [Concomitant]
     Dosage: 200 MILLIGRAM, 1 TABLET BEFORE SLEEP FOR 90 DAYS
  13. VALERIAN [Concomitant]
     Active Substance: VALERIAN
     Dosage: UNK, 1 TABLET BEFORE SLEEP FOR 90 DAYS
  14. Mulungu [Concomitant]
     Dosage: UNK, 1 TABLET BEFORE SLEEP FOR 90 DAYS
  15. DIETARY SUPPLEMENT [Concomitant]
     Active Substance: DIETARY SUPPLEMENT
     Dosage: 200 MILLIGRAM, 1 TABLET BEFORE SLEEP FOR 90 DAYS
  16. PYRIDOXAL PHOSPHATE ANHYDROUS [Concomitant]
     Active Substance: PYRIDOXAL PHOSPHATE ANHYDROUS
     Dosage: 25 MILLIGRAM (1 TABLET AT 10 AM FOR 90 DAYS)
  17. LEUCOVORIN [Concomitant]
     Active Substance: LEUCOVORIN\LEUCOVORIN CALCIUM
     Dosage: 400 MICROGRAM 1 TABLET AT 10 AM FOR 90 DAYS)
  18. METHYLCOBALAMIN [Concomitant]
     Active Substance: METHYLCOBALAMIN
     Dosage: 200 MICROGRAM (1 TABLET AT 10 AM FOR 90 DAYS)
  19. INOSITOL NIACINATE [Concomitant]
     Active Substance: INOSITOL NIACINATE
     Dosage: 250 MICROGRAM  (1 TABLET AT 10 AM FOR 90 DAYS)
     Route: 065
  20. GLYCINE [Concomitant]
     Active Substance: GLYCINE
     Dosage: 520 MILLIGRAM (1 TABLET AT 10 AM FOR 90 DAYS)
  21. ACETYLCYSTEINE [Concomitant]
     Active Substance: ACETYLCYSTEINE
     Dosage: 600 MILLIGRAM  (1 TABLET AT 10 AM FOR 90 DAYS)
  22. SELENOMETHIONINE [Concomitant]
     Active Substance: SELENOMETHIONINE
     Dosage: 200 MICROGRAM (1 TABLET AT 10 AM FOR 90 DAYS)
  23. KELP IODINE RATION [Concomitant]
     Dosage: 600 MICROGRAM, 1 TABLET AT 10 AM FOR 90 DAYS
  24. LACTULOSE [Concomitant]
     Active Substance: LACTULOSE
     Dosage: 667 MILLIGRAM PER MILLILITRE, QD (10 ML ONCE A DAY)
     Route: 065

REACTIONS (27)
  - Platelet count decreased [Recovering/Resolving]
  - Illness [Recovering/Resolving]
  - Screaming [Recovering/Resolving]
  - Decreased immune responsiveness [Recovering/Resolving]
  - Skin wound [Recovering/Resolving]
  - Skin haemorrhage [Recovering/Resolving]
  - Mouth ulceration [Recovering/Resolving]
  - Dysphagia [Recovering/Resolving]
  - Oropharyngeal pain [Recovering/Resolving]
  - Insomnia [Recovering/Resolving]
  - Scab [Recovering/Resolving]
  - Constipation [Recovering/Resolving]
  - Vomiting [Recovered/Resolved]
  - Alopecia [Not Recovered/Not Resolved]
  - Mucosal inflammation [Recovering/Resolving]
  - Abdominal pain [Recovering/Resolving]
  - Decreased appetite [Recovering/Resolving]
  - Fatigue [Recovering/Resolving]
  - Nausea [Recovering/Resolving]
  - Acne [Recovering/Resolving]
  - Pruritus [Recovering/Resolving]
  - Erythema [Recovering/Resolving]
  - Dry skin [Recovering/Resolving]
  - Skin fissures [Recovering/Resolving]
  - Dysgeusia [Recovering/Resolving]
  - Muscular weakness [Recovering/Resolving]
  - Cold shock response [Recovering/Resolving]

NARRATIVE: CASE EVENT DATE: 20240101
